FAERS Safety Report 16057287 (Version 1)
Quarter: 2019Q1

REPORT INFORMATION
  Report Type: Spontaneous
  Country: ES (occurrence: ES)
  Receive Date: 20190311
  Receipt Date: 20190311
  Transmission Date: 20190418
  Serious: Yes (Other)
  Sender: FDA-Public Use
  Company Number: ES-SA-2019SA065217

PATIENT
  Age: 63 Year
  Sex: Male

DRUGS (1)
  1. ALIROCUMAB [Suspect]
     Active Substance: ALIROCUMAB
     Indication: HYPERTRIGLYCERIDAEMIA
     Dosage: 75 MG, QOW
     Route: 058
     Dates: start: 20180618, end: 20180912

REACTIONS (3)
  - Blood creatine phosphokinase increased [Recovering/Resolving]
  - Muscular weakness [Recovering/Resolving]
  - Myalgia [Recovering/Resolving]

NARRATIVE: CASE EVENT DATE: 20180706
